FAERS Safety Report 13744586 (Version 2)
Quarter: 2017Q3

REPORT INFORMATION
  Report Type: Spontaneous
  Country: DE (occurrence: DE)
  Receive Date: 20170712
  Receipt Date: 20170712
  Transmission Date: 20171127
  Serious: Yes (Hospitalization)
  Sender: FDA-Public Use
  Company Number: DE-CIPLA LTD.-2017DE11636

PATIENT

DRUGS (6)
  1. TERBINAFINE. [Suspect]
     Active Substance: TERBINAFINE
     Indication: TINEA BARBAE
  2. ACICLOVIR [Suspect]
     Active Substance: ACYCLOVIR
     Dosage: UNK
     Route: 048
  3. CIPROFLOXACIN. [Suspect]
     Active Substance: CIPROFLOXACIN
     Indication: BACTERIAL INFECTION
     Dosage: 500 MG, BID
     Route: 048
  4. ACICLOVIR [Suspect]
     Active Substance: ACYCLOVIR
     Indication: BACTERIAL INFECTION
     Dosage: UNK, CREAM
     Route: 061
  5. CICLOPIROXOLAMINE [Suspect]
     Active Substance: CICLOPIROX OLAMINE
     Indication: BACTERIAL INFECTION
     Dosage: UNK, 1% CREAM, IN THE MORNING AND EVENING
     Route: 061
  6. TERBINAFINE. [Suspect]
     Active Substance: TERBINAFINE
     Indication: BACTERIAL INFECTION
     Dosage: 250 MG, QD
     Route: 065

REACTIONS (1)
  - Condition aggravated [Recovering/Resolving]
